FAERS Safety Report 4697239-7 (Version None)
Quarter: 2005Q2

REPORT INFORMATION
  Report Type: 
  Country: None (occurrence: None)
  Receive Date: 20050622
  Receipt Date: 20050613
  Transmission Date: 20051028
  Serious: Yes (Hospitalization)
  Sender: FDA-Public Use
  Company Number: US-SANOFI-SYNTHELABO-F01200501010

PATIENT
  Sex: Male
  Weight: 74.5 kg

DRUGS (2)
  1. OXALIPLATIN [Suspect]
     Indication: NON-SMALL CELL LUNG CANCER
     Route: 042
     Dates: start: 20050603, end: 20050603
  2. GEMCITABINE [Suspect]
     Route: 042
     Dates: start: 20050610, end: 20050610

REACTIONS (1)
  - ATRIAL FIBRILLATION [None]
